FAERS Safety Report 4498461-5 (Version None)
Quarter: 2004Q4

REPORT INFORMATION
  Report Type: 
  Country: None (occurrence: None)
  Receive Date: 20041105
  Receipt Date: 20041022
  Transmission Date: 20050328
  Serious: Yes (Other)
  Sender: FDA-Public Use
  Company Number: 210097

PATIENT
  Sex: Female

DRUGS (2)
  1. HERCEPTIN [Suspect]
     Indication: BREAST CANCER
     Dosage: 4 MG/KG, SINGLE, INTRAVENOUS
     Route: 042
     Dates: start: 20041018
  2. TAXOTERE [Concomitant]

REACTIONS (2)
  - CARDIAC FAILURE [None]
  - WHITE BLOOD CELL COUNT DECREASED [None]
